FAERS Safety Report 7381737-1 (Version None)
Quarter: 2011Q1

REPORT INFORMATION
  Report Type: 
  Country: None (occurrence: None)
  Receive Date: 20110329
  Receipt Date: 20110303
  Transmission Date: 20110831
  Serious: No
  Sender: FDA-Public Use
  Company Number: US-B.I. PHARMACEUTICALS,INC./RIDGEFIELD-2011-BP-01287BP

PATIENT
  Sex: Female

DRUGS (5)
  1. PRADAXA [Suspect]
     Indication: ATRIAL FIBRILLATION
     Dosage: 300 MG
     Route: 048
     Dates: start: 20101201
  2. PRADAXA [Suspect]
     Indication: ANTICOAGULANT THERAPY
  3. HYDROCHLOROTHIAZIDE [Concomitant]
     Indication: FLUID RETENTION
  4. METOPROLOL TARTRATE [Concomitant]
     Indication: HYPERTENSION
  5. MICARDIS [Concomitant]
     Indication: HYPERTENSION

REACTIONS (1)
  - FOREIGN BODY [None]
